FAERS Safety Report 9271195 (Version 1)
Quarter: 2013Q2

REPORT INFORMATION
  Report Type: Spontaneous
  Country: IL (occurrence: IL)
  Receive Date: 20130506
  Receipt Date: 20130506
  Transmission Date: 20140414
  Serious: Yes (Other)
  Sender: FDA-Public Use
  Company Number: IL-ROCHE-1220324

PATIENT
  Age: 45 Year
  Sex: Male

DRUGS (10)
  1. RITUXIMAB [Suspect]
     Indication: DIFFUSE LARGE B-CELL LYMPHOMA
     Route: 065
     Dates: end: 201012
  2. CYCLOPHOSPHAMIDE [Suspect]
     Indication: DIFFUSE LARGE B-CELL LYMPHOMA
     Route: 065
     Dates: end: 201012
  3. DOXORUBICIN [Suspect]
     Indication: DIFFUSE LARGE B-CELL LYMPHOMA
     Route: 065
     Dates: end: 201012
  4. VINCRISTINE [Suspect]
     Indication: DIFFUSE LARGE B-CELL LYMPHOMA
     Route: 065
     Dates: end: 201012
  5. PREDNISONE [Suspect]
     Indication: DIFFUSE LARGE B-CELL LYMPHOMA
     Route: 065
     Dates: end: 201012
  6. ISONIAZID [Suspect]
     Indication: TUBERCULOSIS
     Route: 065
  7. RIFAMPIN [Suspect]
     Indication: TUBERCULOSIS
     Route: 065
  8. PYRAZINAMIDE [Suspect]
     Indication: TUBERCULOSIS
     Route: 065
  9. ETHAMBUTOL [Suspect]
     Indication: TUBERCULOSIS
     Route: 065
  10. METHOTREXATE [Suspect]
     Indication: PROPHYLAXIS
     Dosage: HIGH DOSE
     Route: 065

REACTIONS (1)
  - Immune reconstitution inflammatory syndrome [Unknown]
